FAERS Safety Report 4549196-1 (Version None)
Quarter: 2005Q1

REPORT INFORMATION
  Report Type: 
  Country: None (occurrence: None)
  Receive Date: 20050111
  Receipt Date: 20041228
  Transmission Date: 20050727
  Serious: Yes (Hospitalization)
  Sender: FDA-Public Use
  Company Number: JP-JNJFOC-20040201531

PATIENT
  Sex: Female
  Weight: 50 kg

DRUGS (9)
  1. REMICADE [Suspect]
     Route: 041
     Dates: start: 20031104
  2. REMICADE [Suspect]
     Indication: RHEUMATOID ARTHRITIS
     Route: 041
     Dates: start: 20031104
  3. RHEUMATREX [Suspect]
     Indication: RHEUMATOID ARTHRITIS
     Route: 065
     Dates: start: 20000610
  4. RUMATIL [Concomitant]
     Route: 049
  5. VOLTAREN [Concomitant]
     Route: 054
  6. PROTECADINE [Concomitant]
     Route: 049
  7. RISCHIL [Concomitant]
     Route: 049
     Dates: start: 19980820
  8. BORTAL [Concomitant]
     Route: 054
     Dates: start: 19970610
  9. FUROTEKASON [Concomitant]
     Route: 049
     Dates: start: 20001010

REACTIONS (3)
  - ANAEMIA [None]
  - MILIARY PNEUMONIA [None]
  - PNEUMONIA [None]
